FAERS Safety Report 16423717 (Version 2)
Quarter: 2019Q3

REPORT INFORMATION
  Report Type: Spontaneous
  Country: JP (occurrence: JP)
  Receive Date: 20190613
  Receipt Date: 20190706
  Transmission Date: 20191004
  Serious: Yes (Other)
  Sender: FDA-Public Use
  Company Number: JP-AMGEN-JPNSP2019048792

PATIENT
  Age: 72 Year
  Sex: Male

DRUGS (2)
  1. VECTIBIX [Suspect]
     Active Substance: PANITUMUMAB
     Indication: COLORECTAL CANCER
     Dosage: 420 MILLIGRAM, Q2WK
     Route: 041
     Dates: end: 201904
  2. MAGNESIUM [Concomitant]
     Active Substance: MAGNESIUM
     Dosage: 20 MILLIEQUIVALENT
     Route: 065

REACTIONS (3)
  - Hypomagnesaemia [Unknown]
  - Colorectal cancer [Unknown]
  - Disease progression [Unknown]

NARRATIVE: CASE EVENT DATE: 20190228
